FAERS Safety Report 7687654-1 (Version None)
Quarter: 2011Q3

REPORT INFORMATION
  Report Type: 
  Country: None (occurrence: None)
  Receive Date: 20110817
  Receipt Date: 20110805
  Transmission Date: 20111222
  Serious: Yes (Other)
  Sender: FDA-Public Use
  Company Number: US-ELI_LILLY_AND_COMPANY-US201108002965

PATIENT
  Age: 45 Year
  Sex: Female

DRUGS (1)
  1. ALIMTA [Suspect]
     Indication: OVARIAN CANCER
     Dosage: UNK, UNKNOWN
     Route: 065

REACTIONS (3)
  - INTESTINAL OBSTRUCTION [None]
  - AFFECT LABILITY [None]
  - OFF LABEL USE [None]
